FAERS Safety Report 9819949 (Version 1)
Quarter: 2014Q1

REPORT INFORMATION
  Report Type: Spontaneous
  Country: US (occurrence: None)
  Receive Date: 20140113
  Receipt Date: 20140113
  Transmission Date: 20141002
  Serious: No
  Sender: FDA-Public Use
  Company Number: None

PATIENT
  Age: 15 Year
  Sex: Male
  Weight: 65.77 kg

DRUGS (1)
  1. PAREMYD [Suspect]
     Indication: OPHTHALMOLOGICAL EXAMINATION
     Dates: start: 20140109, end: 20140109

REACTIONS (4)
  - Somnolence [None]
  - Loss of consciousness [None]
  - Skin discolouration [None]
  - Abdominal pain upper [None]
